FAERS Safety Report 6380385-X (Version None)
Quarter: 2009Q3

REPORT INFORMATION
  Report Type: 
  Country: None (occurrence: None)
  Receive Date: 20090929
  Receipt Date: 20090921
  Transmission Date: 20100115
  Serious: Yes (Other)
  Sender: FDA-Public Use
  Company Number: US-ASTRAZENECA-2009UW17572

PATIENT
  Age: 28 Year
  Sex: Female
  Weight: 95.3 kg

DRUGS (2)
  1. SEROQUEL [Suspect]
     Indication: BIPOLAR I DISORDER
     Route: 048
     Dates: start: 20000101
  2. TRAZODONE HCL [Concomitant]

REACTIONS (3)
  - GESTATIONAL DIABETES [None]
  - OBESITY [None]
  - TYPE 2 DIABETES MELLITUS [None]
